FAERS Safety Report 25036575 (Version 1)
Quarter: 2025Q1

REPORT INFORMATION
  Report Type: Report from Study
  Country: US (occurrence: US)
  Receive Date: 20250304
  Receipt Date: 20250304
  Transmission Date: 20250409
  Serious: Yes (Death, Other)
  Sender: UCB
  Company Number: US-UCBSA-2025012125

PATIENT

DRUGS (2)
  1. ZILUCOPLAN [Suspect]
     Active Substance: ZILUCOPLAN
     Indication: Amyotrophic lateral sclerosis
     Route: 058
  2. ZILUCOPLAN [Suspect]
     Active Substance: ZILUCOPLAN
     Indication: Off label use

REACTIONS (36)
  - Respiratory failure [Fatal]
  - Neuromyopathy [Unknown]
  - Traumatic haematoma [Unknown]
  - Fall [Unknown]
  - Muscular weakness [Unknown]
  - Injection site bruising [Unknown]
  - Fatigue [Unknown]
  - Injection site pain [Unknown]
  - Headache [Unknown]
  - Constipation [Unknown]
  - Dysphagia [Unknown]
  - Dizziness [Unknown]
  - Nausea [Unknown]
  - Decreased appetite [Unknown]
  - Diarrhoea [Unknown]
  - Urinary tract infection [Unknown]
  - Dysarthria [Unknown]
  - Oedema peripheral [Unknown]
  - Cough [Unknown]
  - Dyspnoea [Unknown]
  - Pruritus [Unknown]
  - COVID-19 [Unknown]
  - Contusion [Unknown]
  - Anxiety [Unknown]
  - Tension headache [Unknown]
  - Rash [Unknown]
  - Pain in extremity [Unknown]
  - Arthralgia [Unknown]
  - Hypertension [Unknown]
  - Salivary hypersecretion [Unknown]
  - Injection site reaction [Unknown]
  - Traumatic pain [Unknown]
  - Tinnitus [Unknown]
  - Hepatic enzyme increased [Unknown]
  - Vomiting [Unknown]
  - Off label use [Unknown]
